FAERS Safety Report 16659016 (Version 1)
Quarter: 2019Q3

REPORT INFORMATION
  Report Type: Spontaneous
  Country: TH (occurrence: TH)
  Receive Date: 20190801
  Receipt Date: 20190801
  Transmission Date: 20191004
  Serious: Yes (Death, Hospitalization)
  Sender: FDA-Public Use
  Company Number: TH-BAXTER-2019BAX014643

PATIENT
  Sex: Male

DRUGS (1)
  1. DIANEAL PD-2 WITH DEXTROSE [Suspect]
     Active Substance: CALCIUM CHLORIDE\DEXTROSE\MAGNESIUM CHLORIDE\SODIUM CHLORIDE\SODIUM LACTATE
     Indication: END STAGE RENAL DISEASE
     Route: 033
     Dates: start: 20190228, end: 20190723

REACTIONS (6)
  - Muscular weakness [Not Recovered/Not Resolved]
  - Electrolyte imbalance [Unknown]
  - Pulmonary oedema [Not Recovered/Not Resolved]
  - Fluid overload [Fatal]
  - End stage renal disease [Fatal]
  - Hypophagia [Not Recovered/Not Resolved]
